FAERS Safety Report 4868693-2 (Version None)
Quarter: 2005Q4

REPORT INFORMATION
  Report Type: 
  Country: None (occurrence: None)
  Receive Date: 20051223
  Receipt Date: 20051216
  Transmission Date: 20060501
  Serious: Yes (Death, Other)
  Sender: FDA-Public Use
  Company Number: 2005042784

PATIENT
  Age: 74 Year
  Sex: Female
  Weight: 59.8748 kg

DRUGS (21)
  1. NEURONTIN [Suspect]
     Indication: NEURALGIA
     Dosage: 300 MG (100 MG, 3 IN 1 D), ORAL
     Route: 048
     Dates: start: 20041216, end: 20050101
  2. MIRAPEX [Suspect]
     Indication: ILL-DEFINED DISORDER
  3. ALL OTHER NON-THERAPEUTIC PRODUCTS (ALL OTHER NON-THERAPEUTIC PRODUCTS [Suspect]
     Indication: ILL-DEFINED DISORDER
  4. PROCRIT [Suspect]
     Indication: ILL-DEFINED DISORDER
  5. CYMBALTA [Suspect]
     Indication: ILL-DEFINED DISORDER
  6. SYNTHROID [Concomitant]
  7. PROTONIX [Concomitant]
  8. FUROSEMIDE [Concomitant]
  9. VITAMIN E [Concomitant]
  10. OSCAL 500-D (CALCIUM, COLECALCIFEROL) [Concomitant]
  11. VITAMIN C (VITAMIN C) [Concomitant]
  12. ASPIRIN [Concomitant]
  13. ATENOLOL [Concomitant]
  14. ALLOPURINOL [Concomitant]
  15. ATIVAN [Concomitant]
  16. DITROPAN XL [Concomitant]
  17. FERROUS SULFATE TAB [Concomitant]
  18. TESSALON [Concomitant]
  19. TRAZODONE HCL [Concomitant]
  20. AGRYLIN [Concomitant]
  21. NORTRIPTYLINE (NORTRIPTYLINE) [Concomitant]

REACTIONS (9)
  - DEPRESSION [None]
  - DIARRHOEA [None]
  - DISEASE PROGRESSION [None]
  - DIZZINESS [None]
  - LYMPHOPROLIFERATIVE DISORDER [None]
  - NAUSEA [None]
  - RASH GENERALISED [None]
  - RENAL FAILURE [None]
  - VOMITING [None]
